FAERS Safety Report 8818507 (Version 2)
Quarter: 2012Q4

REPORT INFORMATION
  Report Type: Report from Study
  Country: FR (occurrence: FR)
  Receive Date: 20121001
  Receipt Date: 20121025
  Transmission Date: 20130627
  Serious: Yes (Hospitalization)
  Sender: FDA-Public Use
  Company Number: FR-ROCHE-1132350

PATIENT
  Age: 89 Year
  Sex: Female
  Weight: 40 kg

DRUGS (20)
  1. VISMODEGIB [Suspect]
     Indication: BASAL CELL CARCINOMA
     Dosage: form reported as: 150 mg, last dose prior to SAE: 21/Aug/2011
     Route: 048
     Dates: start: 20111014, end: 20120914
  2. PREVISCAN [Concomitant]
     Indication: PHLEBITIS
     Dosage: TDD: reported as regarding TP
     Route: 065
     Dates: start: 200401
  3. AMLOR [Concomitant]
     Indication: HYPERTENSION
     Route: 065
     Dates: start: 201101
  4. DISCOTRINE [Concomitant]
     Indication: CORONARY ARTERY DISEASE
     Route: 065
     Dates: start: 201101, end: 20111124
  5. XALATAN [Concomitant]
     Indication: CATARACT
     Route: 065
     Dates: start: 200001
  6. ZOPICLONE [Concomitant]
     Indication: SLEEP DISORDER
     Route: 065
     Dates: start: 20111124, end: 20111220
  7. TIORFAN [Concomitant]
     Indication: DIARRHOEA
     Route: 065
     Dates: start: 20111124, end: 20120101
  8. TIORFAN [Concomitant]
     Route: 065
     Dates: start: 20120701, end: 20120706
  9. TIORFAN [Concomitant]
     Route: 065
     Dates: start: 20120714
  10. BIPERIDYS [Concomitant]
     Indication: NAUSEA
     Route: 065
     Dates: start: 20111124, end: 20111231
  11. BIPERIDYS [Concomitant]
     Route: 065
     Dates: start: 20120101
  12. PNEUMO 23 [Concomitant]
     Route: 065
     Dates: start: 20111214, end: 20111214
  13. DOLIPRANE [Concomitant]
     Indication: MUSCULOSKELETAL PAIN
     Route: 065
     Dates: start: 20120228
  14. OGAST [Concomitant]
     Indication: PROPHYLAXIS AGAINST GASTROINTESTINAL ULCER
     Route: 065
     Dates: start: 20120422
  15. IBUPROFEN [Concomitant]
     Route: 065
     Dates: start: 20120619
  16. NIFUROXAZIDE [Concomitant]
     Indication: DIARRHOEA
     Route: 065
     Dates: start: 20120724
  17. KALEORID [Concomitant]
     Route: 065
     Dates: start: 20120703, end: 20120709
  18. ULTRA LEVURA [Concomitant]
     Route: 065
     Dates: start: 20120814, end: 20120819
  19. SMECTA [Concomitant]
     Route: 065
     Dates: start: 20120801
  20. CETORNAN [Concomitant]
     Route: 065
     Dates: start: 20111124, end: 20120101

REACTIONS (1)
  - Asthenia [Not Recovered/Not Resolved]
